FAERS Safety Report 9730276 (Version 1)
Quarter: 2013Q4

REPORT INFORMATION
  Report Type: Spontaneous
  Country: GB (occurrence: GB)
  Receive Date: 20131202
  Receipt Date: 20131202
  Transmission Date: 20140711
  Serious: Yes (Life-Threatening, Hospitalization, Disabling, Other)
  Sender: FDA-Public Use
  Company Number: GB-JNJFOC-20131116535

PATIENT
  Age: 91 Year
  Sex: Female

DRUGS (9)
  1. XARELTO [Suspect]
     Indication: CEREBROVASCULAR ACCIDENT PROPHYLAXIS
     Route: 048
  2. XARELTO [Suspect]
     Indication: ATRIAL FIBRILLATION
     Route: 048
  3. LEVOTHYROXINE [Concomitant]
     Route: 065
  4. SENNA [Concomitant]
     Route: 065
  5. OMEPRAZOLE [Concomitant]
     Route: 065
  6. PREDNISOLONE SODIUM SUCCINATE [Concomitant]
     Route: 065
  7. RISEDRONATE SODIUM [Concomitant]
     Route: 065
  8. ATENOLOL [Concomitant]
     Route: 065
  9. NEFOPAM [Concomitant]
     Route: 065

REACTIONS (2)
  - Haemorrhage intracranial [Not Recovered/Not Resolved]
  - Coma scale abnormal [Unknown]
